FAERS Safety Report 24443185 (Version 1)
Quarter: 2024Q4

REPORT INFORMATION
  Report Type: Spontaneous
  Country: US (occurrence: US)
  Receive Date: 20241016
  Receipt Date: 20241016
  Transmission Date: 20250114
  Serious: No
  Sender: TEVA
  Company Number: US-TEVA-VS-3248727

PATIENT
  Age: 77 Year
  Sex: Female

DRUGS (2)
  1. WARFARIN SODIUM [Suspect]
     Active Substance: WARFARIN SODIUM
     Indication: Mitral valve replacement
     Route: 065
  2. WARFARIN SODIUM [Suspect]
     Active Substance: WARFARIN SODIUM
     Indication: Mitral valve replacement
     Route: 065

REACTIONS (4)
  - International normalised ratio increased [Unknown]
  - Wrong technique in product usage process [Unknown]
  - Therapy change [Unknown]
  - Product quality issue [Unknown]

NARRATIVE: CASE EVENT DATE: 20240716
